FAERS Safety Report 9646563 (Version 1)
Quarter: 2013Q4

REPORT INFORMATION
  Report Type: Report from Study
  Country: CA (occurrence: CA)
  Receive Date: 20131025
  Receipt Date: 20131025
  Transmission Date: 20140711
  Serious: Yes (Other)
  Sender: FDA-Public Use
  Company Number: CA-ROCHE-1294269

PATIENT
  Age: 62 Year
  Sex: Female

DRUGS (7)
  1. RITUXAN [Suspect]
     Indication: SYSTEMIC LUPUS ERYTHEMATOSUS
     Dosage: FREQUENCY - DAY 1 AND DAY 15
     Route: 042
     Dates: start: 20130514
  2. CELLCEPT [Suspect]
     Indication: SYSTEMIC LUPUS ERYTHEMATOSUS
     Dosage: 5 TABLETS DAILY
     Route: 065
  3. CELLCEPT [Suspect]
     Dosage: 3 TABLETS DAILY
     Route: 065
  4. DIPHENHYDRAMINE HCL [Concomitant]
     Route: 048
     Dates: start: 20130514
  5. ACETAMINOPHEN [Concomitant]
     Route: 048
     Dates: start: 20130514
  6. METHYLPREDNISOLONE [Concomitant]
     Route: 042
     Dates: start: 20130514
  7. TECTA [Concomitant]

REACTIONS (4)
  - Osteoarthritis [Not Recovered/Not Resolved]
  - Nausea [Recovered/Resolved]
  - Vomiting [Recovered/Resolved]
  - Diarrhoea [Recovered/Resolved]
